FAERS Safety Report 17918912 (Version 2)
Quarter: 2020Q2

REPORT INFORMATION
  Report Type: Spontaneous
  Country: US (occurrence: US)
  Receive Date: 20200619
  Receipt Date: 20200622
  Transmission Date: 20200714
  Serious: No
  Sender: FDA-Public Use
  Company Number: US-PFIZER INC-2020237874

PATIENT
  Age: 59 Year
  Sex: Female
  Weight: 83.01 kg

DRUGS (1)
  1. PREGABALIN. [Suspect]
     Active Substance: PREGABALIN
     Indication: NEUROPATHY PERIPHERAL
     Dosage: 75 MG, 4X/DAY

REACTIONS (3)
  - Flatulence [Unknown]
  - Gastric disorder [Unknown]
  - Gastrointestinal pain [Unknown]
